FAERS Safety Report 9454690 (Version 1)
Quarter: 2013Q3

REPORT INFORMATION
  Report Type: Spontaneous
  Country: GB (occurrence: GB)
  Receive Date: 20130812
  Receipt Date: 20130812
  Transmission Date: 20140515
  Serious: Yes (Other)
  Sender: FDA-Public Use
  Company Number: PHHY2013GB082843

PATIENT
  Age: 81 Year
  Sex: Female
  Weight: 60.3 kg

DRUGS (9)
  1. SIMVASTATIN [Suspect]
     Indication: HYPERCHOLESTEROLAEMIA
     Dosage: 20 MG, QD (AT NIGHT)
  2. LANSOPRAZOLE [Concomitant]
     Dosage: 1 DF, QD
  3. CANDESARTAN [Concomitant]
     Dosage: 1 DF, QD
  4. IVABRADINE [Concomitant]
     Dosage: 0.5 DF, BID
  5. LEVOTHYROXINE [Concomitant]
     Dosage: 50 UG, QD
  6. LEVOTHYROXINE [Concomitant]
  7. ASPIRIN [Concomitant]
     Dosage: 75 MG, QD
  8. SEREVENT [Concomitant]
     Dosage: 2 DF, BID (2 PUFFS TWICE DIALY.)
     Route: 055
  9. VENTOLIN [Concomitant]
     Route: 055

REACTIONS (11)
  - Sleep disorder [Not Recovered/Not Resolved]
  - Tremor [Not Recovered/Not Resolved]
  - Derealisation [Not Recovered/Not Resolved]
  - Drug withdrawal syndrome [Not Recovered/Not Resolved]
  - Cold sweat [Not Recovered/Not Resolved]
  - Feeling abnormal [Not Recovered/Not Resolved]
  - Anxiety [Not Recovered/Not Resolved]
  - Headache [Not Recovered/Not Resolved]
  - Muscle spasms [Not Recovered/Not Resolved]
  - Dizziness [Not Recovered/Not Resolved]
  - Malaise [Unknown]
